FAERS Safety Report 24119788 (Version 1)
Quarter: 2024Q3

REPORT INFORMATION
  Report Type: Spontaneous
  Country: CN (occurrence: CN)
  Receive Date: 20240722
  Receipt Date: 20240722
  Transmission Date: 20241017
  Serious: Yes (Other)
  Sender: CHEPLAPHARM
  Company Number: None

PATIENT
  Age: 65 Year
  Sex: Female

DRUGS (18)
  1. OLANZAPINE [Suspect]
     Active Substance: OLANZAPINE
     Indication: Schizophrenia
     Dates: start: 202006, end: 202212
  2. OLANZAPINE [Suspect]
     Active Substance: OLANZAPINE
     Indication: Schizophrenia
     Dosage: OLANZAPINE 5 MG ORALLY ONCE DAILY?DAILY DOSE: 5 MILLIGRAM
     Route: 048
  3. OLANZAPINE [Suspect]
     Active Substance: OLANZAPINE
     Indication: Schizophrenia
     Dosage: OLANZAPINE WAS INCREASED TO 10 MG ORALLY ONCE DAILY?DAILY DOSE: 10 MILLIGRAM
     Route: 048
  4. AMISULPRIDE [Suspect]
     Active Substance: AMISULPRIDE
  5. AMISULPRIDE [Suspect]
     Active Substance: AMISULPRIDE
     Dosage: AMISULPRIDE WAS REDUCED TO 0.2 G ORALLY ONCE DAILY?DAILY DOSE: 0.2 GRAM
     Route: 048
  6. AMISULPRIDE [Suspect]
     Active Substance: AMISULPRIDE
     Dosage: AMISULPRIDE WAS GRADUALLY INCREASED AS FOLLOWS: 0.1 G TWICE DAILY FOR 3 DAYS?DAILY DOSE: 0.2 GRAM
     Route: 048
  7. AMISULPRIDE [Suspect]
     Active Substance: AMISULPRIDE
     Dosage: 0.2 G TWICE DAILY FOR 2 DAYS?DAILY DOSE: 0.4 GRAM
     Route: 048
  8. AMISULPRIDE [Suspect]
     Active Substance: AMISULPRIDE
     Dosage: FINALLY, INCREASED TO 0.4 G IN THE MORNING AND 0.2 G IN THE EVENING DAILY?DAILY DOSE: 0.6 GRAM
     Route: 048
  9. TRIHEXYPHENIDYL [Concomitant]
     Active Substance: TRIHEXYPHENIDYL
     Indication: Extrapyramidal disorder
     Dosage: ON LONG-TERM TREATMENT
  10. Xinbao [Concomitant]
     Dosage: PILLS 360 MG ORALLY THREE TIMES DAILY?DAILY DOSE: 1080 MILLIGRAM
     Route: 048
  11. ADENINE [Concomitant]
     Active Substance: ADENINE
     Dosage: 20 MG ORALLY THREE TIMES DAILY?DAILY DOSE: 60 MILLIGRAM
     Route: 048
  12. LEUCOGEN [Concomitant]
     Active Substance: LEUCOGEN
     Dosage: 40 MG ORALLY THREE TIMES DAILY?DAILY DOSE: 120 MILLIGRAM
     Route: 048
  13. RISPERIDONE [Concomitant]
     Active Substance: RISPERIDONE
     Indication: Schizophrenia
     Dates: start: 201801
  14. RISPERIDONE [Concomitant]
     Active Substance: RISPERIDONE
     Indication: Leukopenia
     Dates: start: 201801
  15. RISPERIDONE [Concomitant]
     Active Substance: RISPERIDONE
     Indication: Schizophrenia
     Dates: start: 202006, end: 202212
  16. RISPERIDONE [Concomitant]
     Active Substance: RISPERIDONE
     Indication: Leukopenia
     Dates: start: 202006, end: 202212
  17. RISPERIDONE [Concomitant]
     Active Substance: RISPERIDONE
     Indication: Schizophrenia
     Dosage: RISPERIDONE 2 MG ORALLY TWICE DAILY. ON THE 22ND DAY OF ADMISSION RISPERIDONE WAS DISCONTINUED.
     Route: 048
  18. RISPERIDONE [Concomitant]
     Active Substance: RISPERIDONE
     Indication: Leukopenia
     Dosage: RISPERIDONE 2 MG ORALLY TWICE DAILY. ON THE 22ND DAY OF ADMISSION RISPERIDONE WAS DISCONTINUED.
     Route: 048

REACTIONS (6)
  - Ventricular hypokinesia [Unknown]
  - Drug ineffective [Unknown]
  - Abdominal pain [Unknown]
  - Supraventricular extrasystoles [Unknown]
  - Heart valve incompetence [Unknown]
  - Left ventricular dysfunction [Unknown]
